FAERS Safety Report 25931880 (Version 6)
Quarter: 2025Q4

REPORT INFORMATION
  Report Type: Report from Study
  Country: JP (occurrence: JP)
  Receive Date: 20251016
  Receipt Date: 20251107
  Transmission Date: 20260118
  Serious: Yes (Disabling, Other)
  Sender: JAZZ
  Company Number: JP-JAZZ PHARMACEUTICALS-2025-JP-023891

PATIENT
  Age: 68 Year
  Sex: Male
  Weight: 71.6 kg

DRUGS (3)
  1. VYXEOS [Suspect]
     Active Substance: CYTARABINE\DAUNORUBICIN
     Indication: Acute myeloid leukaemia
     Dosage: 100 UNITS PER SQUARE METRE
     Dates: start: 20250623, end: 20250623
  2. VYXEOS [Suspect]
     Active Substance: CYTARABINE\DAUNORUBICIN
     Dosage: UNK
     Dates: start: 20250625, end: 20250625
  3. VYXEOS [Suspect]
     Active Substance: CYTARABINE\DAUNORUBICIN
     Dosage: UNK
     Dates: start: 20250627, end: 20250627

REACTIONS (2)
  - Cardiac dysfunction [Not Recovered/Not Resolved]
  - Acute myeloid leukaemia recurrent [Unknown]

NARRATIVE: CASE EVENT DATE: 20250930
